FAERS Safety Report 8935755 (Version 1)
Quarter: 2012Q4

REPORT INFORMATION
  Report Type: Spontaneous
  Country: US (occurrence: None)
  Receive Date: 20121121
  Receipt Date: 20121121
  Transmission Date: 20130627
  Serious: Yes (Hospitalization)
  Sender: FDA-Public Use
  Company Number: UTC-024383

PATIENT
  Age: 36 Year
  Sex: Female
  Weight: 49.55 kg

DRUGS (3)
  1. TYVASO (6 MICROGRAM, AEROSOL FOR INHALATION) (TREPROSTINIL SODIUM) [Suspect]
     Indication: PRIMARY PULMONARY HYPERTENSION
     Dates: start: 20121002
  2. REVATIO [Concomitant]
  3. COUMADIN [Concomitant]

REACTIONS (3)
  - Bronchitis [None]
  - Pulmonary arterial hypertension [None]
  - Condition aggravated [None]
